FAERS Safety Report 23297880 (Version 5)
Quarter: 2025Q1

REPORT INFORMATION
  Report Type: Report from Study
  Country: BR (occurrence: BR)
  Receive Date: 20231214
  Receipt Date: 20250320
  Transmission Date: 20250408
  Serious: Yes (Hospitalization, Other)
  Sender: GLAXOSMITHKLINE
  Company Number: BR-GLAXOSMITHKLINE-BR2015GSK176424

PATIENT

DRUGS (9)
  1. BELIMUMAB [Suspect]
     Active Substance: BELIMUMAB
     Indication: Systemic lupus erythematosus
     Dates: start: 20151109
  2. BELIMUMAB [Suspect]
     Active Substance: BELIMUMAB
  3. BELIMUMAB [Suspect]
     Active Substance: BELIMUMAB
  4. BELIMUMAB [Suspect]
     Active Substance: BELIMUMAB
  5. VITAMIN C [Suspect]
     Active Substance: ASCORBIC ACID
     Indication: Product used for unknown indication
  6. PREDNISONE [Concomitant]
     Active Substance: PREDNISONE
     Indication: Pain in extremity
  7. HYDROXYCHLOROQUINE SULFATE [Concomitant]
     Active Substance: HYDROXYCHLOROQUINE SULFATE
     Indication: Product used for unknown indication
  8. IRON POLYMALTOSE [Concomitant]
     Active Substance: IRON POLYMALTOSE
     Indication: Immunodeficiency
  9. IRON POLYMALTOSE [Concomitant]
     Active Substance: IRON POLYMALTOSE
     Indication: Anaemia

REACTIONS (36)
  - Breast cancer [Not Recovered/Not Resolved]
  - Breast mass [Not Recovered/Not Resolved]
  - Decreased immune responsiveness [Not Recovered/Not Resolved]
  - Rash macular [Recovered/Resolved]
  - Erythema [Recovered/Resolved]
  - Skin warm [Recovered/Resolved]
  - Skin discolouration [Recovered/Resolved]
  - Alopecia [Recovered/Resolved]
  - Fall [Recovered/Resolved]
  - Lower limb fracture [Recovered/Resolved]
  - Skin wound [Recovered/Resolved]
  - Skin disorder [Recovered/Resolved]
  - Weight increased [Unknown]
  - Paraesthesia [Unknown]
  - Swelling [Unknown]
  - Weight decreased [Unknown]
  - COVID-19 [Recovered/Resolved]
  - Influenza [Unknown]
  - Immune system disorder [Unknown]
  - Throat irritation [Unknown]
  - Sneezing [Unknown]
  - Malaise [Unknown]
  - Headache [Unknown]
  - Pyrexia [Not Recovered/Not Resolved]
  - Nasal congestion [Unknown]
  - Vitamin D decreased [Unknown]
  - Asthenia [Not Recovered/Not Resolved]
  - Haemoglobin decreased [Unknown]
  - Globulins decreased [Not Recovered/Not Resolved]
  - Anaemia [Not Recovered/Not Resolved]
  - Social problem [Unknown]
  - Underdose [Unknown]
  - Drug ineffective [Recovered/Resolved]
  - Therapeutic response unexpected [Recovered/Resolved]
  - Product dose omission issue [Unknown]
  - Inappropriate schedule of product administration [Unknown]

NARRATIVE: CASE EVENT DATE: 20210810
